FAERS Safety Report 4267008-0 (Version None)
Quarter: 2004Q1

REPORT INFORMATION
  Report Type: 
  Country: None (occurrence: None)
  Receive Date: 20040107
  Receipt Date: 20031230
  Transmission Date: 20041129
  Serious: Yes (Death)
  Sender: FDA-Public Use
  Company Number: US-JNJFOC-20040100069

PATIENT
  Age: 85 Year
  Sex: Male

DRUGS (2)
  1. RISPERDAL [Suspect]
     Indication: DEMENTIA
     Dosage: 1 MG, 1 IN 1 DAY, ORAL
     Route: 048
     Dates: end: 20031227
  2. EXELON [Concomitant]

REACTIONS (1)
  - DEATH [None]
